FAERS Safety Report 7534442-2 (Version None)
Quarter: 2011Q2

REPORT INFORMATION
  Report Type: 
  Country: None (occurrence: None)
  Receive Date: 20110608
  Receipt Date: 20110606
  Transmission Date: 20111010
  Serious: Yes (Death, Other)
  Sender: FDA-Public Use
  Company Number: US-ABBOTT-10P-163-0682990-00

PATIENT
  Sex: Male
  Weight: 63.56 kg

DRUGS (2)
  1. LORAZEPAM [Concomitant]
     Indication: PRODUCT USED FOR UNKNOWN INDICATION
  2. HUMIRA [Suspect]
     Indication: PSORIASIS
     Route: 058
     Dates: start: 20070319

REACTIONS (4)
  - MOUTH HAEMORRHAGE [None]
  - EPISTAXIS [None]
  - HYPERTENSION [None]
  - STRESS [None]
